FAERS Safety Report 16342859 (Version 1)
Quarter: 2019Q2

REPORT INFORMATION
  Report Type: Spontaneous
  Country: US (occurrence: US)
  Receive Date: 20190522
  Receipt Date: 20190522
  Transmission Date: 20190711
  Serious: No
  Sender: FDA-Public Use
  Company Number: PHEH2019US021007

PATIENT
  Sex: Female

DRUGS (1)
  1. VOTRIENT [Suspect]
     Active Substance: PAZOPANIB HYDROCHLORIDE
     Indication: ONCOLOGIC COMPLICATION
     Dosage: 800 MG, QD
     Route: 048
     Dates: start: 20180212

REACTIONS (3)
  - Food intolerance [Unknown]
  - Nausea [Unknown]
  - Appetite disorder [Unknown]
